FAERS Safety Report 9307091 (Version 2)
Quarter: 2013Q2

REPORT INFORMATION
  Report Type: Report from Study
  Country: US (occurrence: US)
  Receive Date: 20130523
  Receipt Date: 20130601
  Transmission Date: 20140414
  Serious: Yes (Death, Other)
  Sender: FDA-Public Use
  Company Number: US-ROCHE-1228286

PATIENT
  Sex: Male

DRUGS (11)
  1. XELODA [Suspect]
     Indication: SKIN CANCER
     Route: 065
  2. BUDESONIDE [Concomitant]
     Dosage: 0.25 MG/2ML NEBULIZER
     Route: 065
  3. CARVEDILOL [Concomitant]
     Route: 065
  4. CITALOPRAM [Concomitant]
     Dosage: 10MG/5ML DAILY
     Route: 065
  5. CLINDAMYCIN [Concomitant]
     Route: 065
  6. DOCUSATE SODIUM [Concomitant]
     Route: 065
  7. ENOXAPARIN [Concomitant]
     Dosage: 40MG/0.4ML DAILY
     Route: 058
  8. FENTANYL [Concomitant]
     Dosage: 25 MCG/HOUR PATCH
     Route: 065
  9. FERROUS SULPHATE [Concomitant]
     Route: 065
  10. FOLIC ACID [Concomitant]
     Route: 065
  11. FUROSEMIDE [Concomitant]
     Route: 065

REACTIONS (5)
  - Metastatic squamous cell carcinoma [Fatal]
  - Pulmonary embolism [Unknown]
  - Hip fracture [Unknown]
  - Cardiac failure congestive [Unknown]
  - Pneumonia [Unknown]
